FAERS Safety Report 9459020 (Version 1)
Quarter: 2013Q3

REPORT INFORMATION
  Report Type: Spontaneous
  Country: US (occurrence: US)
  Receive Date: 20130814
  Receipt Date: 20130814
  Transmission Date: 20140515
  Serious: No
  Sender: FDA-Public Use
  Company Number: US-PFIZER INC-2013234914

PATIENT
  Sex: 0

DRUGS (2)
  1. LYRICA [Suspect]
     Indication: HERPES ZOSTER
     Dosage: UNK FOR THREE MONTHS
  2. LYRICA [Suspect]
     Indication: NEURALGIA

REACTIONS (2)
  - Dizziness [Unknown]
  - Somnolence [Unknown]
